FAERS Safety Report 4760705-X (Version None)
Quarter: 2005Q3

REPORT INFORMATION
  Report Type: 
  Country: None (occurrence: None)
  Receive Date: 20050826
  Receipt Date: 20050314
  Transmission Date: 20060218
  Serious: Yes (Hospitalization, Other)
  Sender: FDA-Public Use
  Company Number: USA-2005-0019320

PATIENT
  Age: 74 Year
  Sex: Male
  Weight: 93 kg

DRUGS (3)
  1. OXYCONTIN [Suspect]
     Indication: PAIN
     Dosage: 40 MG BID
     Dates: start: 20050306, end: 20050307
  2. ALTACE [Concomitant]
  3. METFORMIN [Concomitant]

REACTIONS (4)
  - CONVULSION [None]
  - DYSPNOEA [None]
  - MALAISE [None]
  - MUSCLE TIGHTNESS [None]
